FAERS Safety Report 8988242 (Version 1)
Quarter: 2012Q4

REPORT INFORMATION
  Report Type: Report from Study
  Country: JP (occurrence: JP)
  Receive Date: 20121227
  Receipt Date: 20121227
  Transmission Date: 20130627
  Serious: Yes (Other)
  Sender: FDA-Public Use
  Company Number: JP-ROCHE-1170865

PATIENT
  Sex: Male

DRUGS (20)
  1. TOCILIZUMAB [Suspect]
     Indication: RHEUMATOID ARTHRITIS
     Route: 041
     Dates: start: 20091021, end: 20110131
  2. TOCILIZUMAB [Suspect]
     Indication: RHEUMATOID ARTHRITIS
     Route: 041
     Dates: start: 20110315, end: 20110607
  3. TOCILIZUMAB [Suspect]
     Indication: RHEUMATOID ARTHRITIS
     Dosage: Dosage is uncertain.
     Route: 041
     Dates: start: 20111101
  4. AZULFIDINE-EN [Concomitant]
     Indication: RHEUMATOID ARTHRITIS
     Route: 048
  5. METOLATE [Concomitant]
     Indication: RHEUMATOID ARTHRITIS
     Route: 048
     Dates: end: 20100112
  6. ISCOTIN [Concomitant]
     Indication: ANTIBIOTIC PROPHYLAXIS
     Route: 048
     Dates: start: 20090609
  7. PREDONINE [Concomitant]
     Indication: RHEUMATOID ARTHRITIS
     Route: 048
     Dates: end: 20091116
  8. PREDONINE [Concomitant]
     Indication: RHEUMATOID ARTHRITIS
     Route: 048
     Dates: start: 20091117, end: 20091214
  9. PREDONINE [Concomitant]
     Indication: RHEUMATOID ARTHRITIS
     Route: 048
     Dates: start: 20091215, end: 20100117
  10. PREDONINE [Concomitant]
     Indication: RHEUMATOID ARTHRITIS
     Route: 048
     Dates: start: 20100118, end: 20100215
  11. PREDONINE [Concomitant]
     Indication: RHEUMATOID ARTHRITIS
     Route: 048
     Dates: start: 20100216, end: 20100315
  12. PREDONINE [Concomitant]
     Indication: RHEUMATOID ARTHRITIS
     Route: 048
     Dates: start: 20100316, end: 20100412
  13. PREDONINE [Concomitant]
     Indication: RHEUMATOID ARTHRITIS
     Route: 048
     Dates: start: 20100413, end: 20100607
  14. PREDONINE [Concomitant]
     Indication: RHEUMATOID ARTHRITIS
     Route: 048
     Dates: start: 20100608, end: 2010
  15. PREDONINE [Concomitant]
     Indication: RHEUMATOID ARTHRITIS
     Dosage: Uncertain dosage (less than 5mg)
     Route: 048
     Dates: start: 2010, end: 2010
  16. PREDONINE [Concomitant]
     Indication: RHEUMATOID ARTHRITIS
     Dosage: Uncertain dosage (5mg or more)
     Route: 048
     Dates: start: 2010
  17. CYTOTEC [Concomitant]
     Indication: PROPHYLAXIS
     Route: 048
  18. OMEPRAZON [Concomitant]
     Indication: PROPHYLAXIS
     Route: 048
  19. PYRIDOXAL PHOSPHATE [Concomitant]
     Indication: PROPHYLAXIS
     Route: 048
  20. ALENDRONATE SODIUM [Concomitant]
     Route: 048

REACTIONS (1)
  - Actinic keratosis [Unknown]
